FAERS Safety Report 5249987-8 (Version None)
Quarter: 2007Q1

REPORT INFORMATION
  Report Type: 
  Country: None (occurrence: None)
  Receive Date: 20070228
  Receipt Date: 20060322
  Transmission Date: 20070707
  Serious: Yes (Hospitalization)
  Sender: FDA-Public Use
  Company Number: US-GLAXOSMITHKLINE-A0589656A

PATIENT
  Sex: Female

DRUGS (2)
  1. LAMICTAL [Suspect]
     Indication: DRUG USE FOR UNKNOWN INDICATION
     Route: 048
  2. DEPAKOTE [Concomitant]

REACTIONS (5)
  - HEPATIC FAILURE [None]
  - HEPATITIS [None]
  - LYMPHADENOPATHY [None]
  - MOUTH ULCERATION [None]
  - RASH [None]
